FAERS Safety Report 9637102 (Version 3)
Quarter: 2014Q2

REPORT INFORMATION
  Report Type: Spontaneous
  Country: US (occurrence: US)
  Receive Date: 20131022
  Receipt Date: 20140421
  Transmission Date: 20141212
  Serious: Yes (Hospitalization, Other)
  Sender: FDA-Public Use
  Company Number: US-BRISTOL-MYERS SQUIBB COMPANY-19606136

PATIENT
  Age: 69 Year
  Sex: Male

DRUGS (18)
  1. BYETTA [Suspect]
     Indication: TYPE 2 DIABETES MELLITUS
     Dosage: 10MCG/0.04ML
     Route: 058
     Dates: start: 20070411, end: 201209
  2. GLIPIZIDE [Concomitant]
     Dosage: TAB
     Route: 048
  3. METANX [Concomitant]
     Dosage: 1DF:3-35-2 MG(TAB)
     Route: 048
  4. METFORMIN HCL [Concomitant]
     Route: 048
  5. ANDROGEL [Concomitant]
  6. SIMVASTATIN [Concomitant]
     Dosage: TAB
     Route: 048
  7. VESICARE [Concomitant]
     Dosage: TAB
     Route: 048
  8. OMEPRAZOLE [Concomitant]
  9. TAMSULOSIN [Concomitant]
     Route: 048
  10. ZOSTAVAX [Concomitant]
  11. VESICARE [Concomitant]
  12. POTASSIUM CITRATE [Concomitant]
  13. NOVOLOG [Concomitant]
     Dosage: 1DF=100UNITS/ML
  14. POTASSIUM CITRATE [Concomitant]
  15. CIALIS [Concomitant]
  16. GABAPENTIN [Concomitant]
  17. MORPHINE SULFATE [Concomitant]
  18. EUCERIN [Concomitant]
     Route: 061

REACTIONS (1)
  - Pancreatic carcinoma [Unknown]
